FAERS Safety Report 10145625 (Version 1)
Quarter: 2014Q2

REPORT INFORMATION
  Report Type: Spontaneous
  Country: US (occurrence: US)
  Receive Date: 20140501
  Receipt Date: 20140501
  Transmission Date: 20141212
  Serious: Yes (Death, Life-Threatening, Hospitalization)
  Sender: FDA-Public Use
  Company Number: US-ROCHE-1386880

PATIENT
  Age: 63 Year
  Sex: Female
  Weight: 70.82 kg

DRUGS (16)
  1. XELODA [Suspect]
     Indication: BREAST CANCER METASTATIC
     Dosage: VARIABLE DOSE (1500 MG IN THE MORNING AND 2000 MG IN EVENING).
     Route: 048
     Dates: start: 20140114
  2. TYKERB [Suspect]
     Indication: BREAST CANCER
     Route: 048
     Dates: start: 20140114
  3. SIMVASTATIN [Concomitant]
  4. PARACETAMOL [Concomitant]
  5. DILTIAZEM HYDROCHLORIDE [Concomitant]
  6. LACTULOSE [Concomitant]
     Route: 065
  7. MECLOZINE HYDROCHLORIDE [Concomitant]
  8. OMEPRAZOLE [Concomitant]
  9. LORTAB [Concomitant]
  10. LISINOPRIL [Concomitant]
  11. PROMETHAZINE [Concomitant]
  12. METOCLOPRAMIDE [Concomitant]
  13. SENNOSIDES [Concomitant]
  14. POLYETHYLENE GLYCOL [Concomitant]
  15. ONDANSETRON HYDROCHLORIDE [Concomitant]
  16. DOCUSATE SODIUM [Concomitant]

REACTIONS (13)
  - Pneumonia aspiration [Fatal]
  - Aspiration [Fatal]
  - Hypoxia [Unknown]
  - Diarrhoea [Unknown]
  - Fatigue [Unknown]
  - Dehydration [Unknown]
  - Asthenia [Unknown]
  - Alopecia [Unknown]
  - Weight decreased [Unknown]
  - Decreased appetite [Unknown]
  - Cough [Unknown]
  - Nausea [Unknown]
  - Vomiting [Unknown]
